FAERS Safety Report 9016011 (Version 2)
Quarter: 2013Q1

REPORT INFORMATION
  Report Type: Spontaneous
  Country: US (occurrence: US)
  Receive Date: 20130116
  Receipt Date: 20130201
  Transmission Date: 20140127
  Serious: No
  Sender: FDA-Public Use
  Company Number: US-009507513-1301USA006475

PATIENT
  Sex: Male

DRUGS (3)
  1. DULERA [Suspect]
     Indication: RESPIRATORY DISORDER
     Dosage: 2 DF, BID
     Route: 055
     Dates: start: 20120110
  2. LISINOPRIL [Concomitant]
  3. SIMVASTATIN [Concomitant]

REACTIONS (2)
  - Rash [Recovering/Resolving]
  - Device malfunction [Unknown]
